FAERS Safety Report 18700504 (Version 1)
Quarter: 2021Q1

REPORT INFORMATION
  Report Type: Spontaneous
  Country: GB (occurrence: GB)
  Receive Date: 20210105
  Receipt Date: 20210105
  Transmission Date: 20210419
  Serious: Yes (Hospitalization)
  Sender: FDA-Public Use
  Company Number: GB-TEVA-2020-GB-1865079

PATIENT
  Age: 17 Year
  Sex: Male
  Weight: 106 kg

DRUGS (10)
  1. DEXAMETHASONE. [Suspect]
     Active Substance: DEXAMETHASONE
     Indication: ADRENAL INSUFFICIENCY
     Dosage: .5 MILLIGRAM DAILY;
     Route: 065
  2. DEXAMETHASONE. [Suspect]
     Active Substance: DEXAMETHASONE
     Dosage: 1 MILLIGRAM DAILY;
     Route: 065
  3. AMILORIDE [Concomitant]
     Active Substance: AMILORIDE
     Indication: HYPERTENSION
     Route: 065
  4. VITAMIN D [Concomitant]
     Active Substance: VITAMIN D NOS
     Indication: OSTEOPOROSIS
     Route: 065
  5. SALBUTAMOL [Concomitant]
     Active Substance: ALBUTEROL
     Indication: ASTHMA
     Route: 050
  6. RAMIPRIL. [Concomitant]
     Active Substance: RAMIPRIL
     Indication: HYPERTENSION
     Route: 065
  7. RAMIPRIL. [Concomitant]
     Active Substance: RAMIPRIL
     Indication: HYPOKALAEMIA
  8. METYRAPONE [Concomitant]
     Active Substance: METYRAPONE
     Indication: ADRENAL INSUFFICIENCY
     Dosage: INTERVAL: 3 TIME A DAY
     Route: 065
  9. BECLOMETASONE [Suspect]
     Active Substance: BECLOMETHASONE DIPROPIONATE
     Indication: ASTHMA
     Route: 050
  10. AMILORIDE [Concomitant]
     Active Substance: AMILORIDE
     Indication: HYPOKALAEMIA

REACTIONS (2)
  - Epidural lipomatosis [Recovered/Resolved]
  - Pituitary-dependent Cushing^s syndrome [Recovered/Resolved]
